FAERS Safety Report 22586806 (Version 8)
Quarter: 2024Q4

REPORT INFORMATION
  Report Type: Report from Study
  Country: US (occurrence: US)
  Receive Date: 20230611
  Receipt Date: 20241219
  Transmission Date: 20250115
  Serious: Yes (Other)
  Sender: ABBVIE
  Company Number: US-ABBVIE-4723450

PATIENT
  Age: 47 Year
  Sex: Female
  Weight: 92.079 kg

DRUGS (18)
  1. RINVOQ [Suspect]
     Active Substance: UPADACITINIB
     Indication: Rheumatoid arthritis
     Dosage: LAST ADMINISTRATION DATE : 2019
     Route: 048
     Dates: start: 20190801
  2. RINVOQ [Suspect]
     Active Substance: UPADACITINIB
     Indication: Rheumatoid arthritis
     Dosage: FORM STRENGTH: 15 MILLIGRAM?LAST ADMINISTRATION DATE : 2019
     Route: 048
     Dates: start: 201910
  3. RINVOQ [Suspect]
     Active Substance: UPADACITINIB
     Indication: Rheumatoid arthritis
     Route: 048
  4. RINVOQ [Suspect]
     Active Substance: UPADACITINIB
     Indication: Rheumatoid arthritis
     Dosage: STRENGTH: 15 MILLIGRAM
     Route: 048
  5. RINVOQ [Suspect]
     Active Substance: UPADACITINIB
     Indication: Rheumatoid arthritis
     Route: 048
     Dates: start: 20190925
  6. RINVOQ [Suspect]
     Active Substance: UPADACITINIB
     Indication: Rheumatoid arthritis
     Route: 048
     Dates: start: 20191115
  7. HYDROCODONE BITARTRATE AND ACETAMINOPHEN [Concomitant]
     Active Substance: ACETAMINOPHEN\HYDROCODONE BITARTRATE
     Indication: Product used for unknown indication
     Dosage: 60 TABLETS FOR 30 DAYS / TAKE 1-2 OS AS NEEDED FOR SEVERE PAIN?FORM STRENGTH: 325MG/1; 5MG/1
  8. PROAIR HFA [Concomitant]
     Active Substance: ALBUTEROL SULFATE
     Indication: Product used for unknown indication
     Dosage: FORM STRENGTH: 90UG/1
  9. TOPIRAMATE [Concomitant]
     Active Substance: TOPIRAMATE
     Indication: Product used for unknown indication
     Dosage: 200 CAPSULES FOR 100 DAYS / ONE ORALLY TWICE A DAY?FORM STRENGTH: 50MG/1
     Route: 048
  10. SUMATRIPTAN [Concomitant]
     Active Substance: SUMATRIPTAN
     Indication: Product used for unknown indication
     Dosage: FORM STRENGTH: 20MG/1?2 EACH FOR 10 DAYS (5 REFILLS) / 20 MG ONCE IN A SINGLE NOSTRIL. IF INITIAL...
  11. VALIUM [Concomitant]
     Active Substance: DIAZEPAM
     Indication: Product used for unknown indication
     Dosage: 10 TABLETS FOR 10 DAYS / 1/2 -1 ABOUT 1/2 HOUR PRIOR TO FLIGHTS TO EUROPE?10MG/1
  12. FIORICET [Concomitant]
     Active Substance: ACETAMINOPHEN\BUTALBITAL\CAFFEINE
     Indication: Product used for unknown indication
     Route: 048
  13. DULOXETINE [Concomitant]
     Active Substance: DULOXETINE
     Indication: Product used for unknown indication
     Dosage: 90 EACH FOR 90 DAYS (1 REFILL) / ONE ORALLY EACH DAY FOR MOOD AND PAIN?FORM STRENGTH: 20MG/1
     Route: 048
  14. METFORMIN [Concomitant]
     Active Substance: METFORMIN HYDROCHLORIDE
     Indication: Product used for unknown indication
     Dosage: 180 TABLETS FOR 90 DAYS (1 REFILL) / ONE TAB ORALLY BID?FORM STRENGTH: 750 MG
  15. CYCLOBENZAPRINE [Concomitant]
     Active Substance: CYCLOBENZAPRINE
     Indication: Product used for unknown indication
     Dosage: FORM STRENGTH : 10 MILLIGRAM?DAILY AS NEEDED
  16. TYLENOL WITH CODEINE [Concomitant]
     Active Substance: ACETAMINOPHEN\CODEINE PHOSPHATE
     Indication: Product used for unknown indication
     Dosage: FORM STRENGTH: 30MG/1, 15 TABLETS FOR 5 DAYS / 1 TAB Q 4 HRS PM SEVERE PAIN
  17. PROMETHAZINE [Concomitant]
     Active Substance: PROMETHAZINE HYDROCHLORIDE
     Indication: Product used for unknown indication
  18. ERGOCALCIFEROL [Concomitant]
     Active Substance: ERGOCALCIFEROL
     Indication: Product used for unknown indication
     Dosage: FORM STRENGTH: 1.25MG/1, 12 EACH FOR 90 DAYS / ONE ORALLY EACH WEEK
     Route: 048

REACTIONS (14)
  - Surgery [Not Recovered/Not Resolved]
  - Arthralgia [Unknown]
  - COVID-19 [Not Recovered/Not Resolved]
  - Impaired fasting glucose [Unknown]
  - Joint injury [Not Recovered/Not Resolved]
  - Herpes zoster [Unknown]
  - Arthropathy [Unknown]
  - Ovarian cyst [Unknown]
  - Cholecystectomy [Unknown]
  - Osteoarthritis [Unknown]
  - Cartilage injury [Recovering/Resolving]
  - Post procedural oedema [Unknown]
  - Procedural pain [Recovering/Resolving]
  - Nasopharyngitis [Not Recovered/Not Resolved]

NARRATIVE: CASE EVENT DATE: 20200601
